FAERS Safety Report 4768993-0 (Version None)
Quarter: 2005Q3

REPORT INFORMATION
  Report Type: 
  Country: None (occurrence: None)
  Receive Date: 20050914
  Receipt Date: 20050907
  Transmission Date: 20060218
  Serious: Yes (Other)
  Sender: FDA-Public Use
  Company Number: 2005084402

PATIENT
  Age: 20 Year
  Sex: Female
  Weight: 65 kg

DRUGS (3)
  1. ZOLOFT [Suspect]
     Indication: DEPRESSION
     Dosage: 20 MG (DAILY)
     Dates: start: 20050512, end: 20050515
  2. DEPAKENE [Concomitant]
  3. ALPRAZOLAM [Concomitant]

REACTIONS (3)
  - CONTUSION [None]
  - EPILEPSY [None]
  - HEADACHE [None]
